FAERS Safety Report 7936450-6 (Version None)
Quarter: 2011Q4

REPORT INFORMATION
  Report Type: 
  Country: None (occurrence: None)
  Receive Date: 20111123
  Receipt Date: 20111116
  Transmission Date: 20120403
  Serious: Yes (Hospitalization)
  Sender: FDA-Public Use
  Company Number: US-SANOFI-AVENTIS-2011SA075711

PATIENT
  Age: 66 Year
  Sex: Male

DRUGS (3)
  1. ALL OTHER THERAPEUTIC PRODUCTS [Suspect]
     Indication: PAIN
     Dates: start: 20110923
  2. PLAVIX [Suspect]
     Indication: STENT PLACEMENT
     Dates: start: 20110801
  3. PLAVIX [Suspect]
     Dates: start: 20110801

REACTIONS (2)
  - VIITH NERVE PARALYSIS [None]
  - DYSARTHRIA [None]
